FAERS Safety Report 9773303 (Version 2)
Quarter: 2013Q4

REPORT INFORMATION
  Report Type: Spontaneous
  Country: US (occurrence: US)
  Receive Date: 20131219
  Receipt Date: 20131219
  Transmission Date: 20140711
  Serious: No
  Sender: FDA-Public Use
  Company Number: US-PFIZER INC-2013305931

PATIENT
  Age: 77 Year
  Sex: Female

DRUGS (2)
  1. SUTENT [Suspect]
     Indication: LIP NEOPLASM MALIGNANT STAGE UNSPECIFIED
     Dosage: 37.5 MG, CYCLIC (QD 28 D ON/ 14 D OFF)
     Route: 048
     Dates: start: 20120425
  2. SUTENT [Suspect]
     Dosage: 37.5 MG, CYCLIC (QD 14 DAYS ON 7 DAYS OFF)
     Route: 048
     Dates: start: 20121220

REACTIONS (2)
  - Diarrhoea [Unknown]
  - Off label use [Unknown]
